FAERS Safety Report 18854872 (Version 1)
Quarter: 2021Q1

REPORT INFORMATION
  Report Type: Spontaneous
  Country: US (occurrence: US)
  Receive Date: 20210205
  Receipt Date: 20210205
  Transmission Date: 20210420
  Serious: No
  Sender: FDA-Public Use
  Company Number: US-MYLANLABS-2021M1006250

PATIENT
  Age: 70 Year
  Sex: Female
  Weight: 86 kg

DRUGS (1)
  1. SCOPOLAMINE TRANSDERMAL SYSTEM [Suspect]
     Active Substance: SCOPOLAMINE
     Indication: NAUSEA
     Dosage: 1 PATCH EVERY 3 DAYS
     Route: 062
     Dates: start: 20210122

REACTIONS (2)
  - Product adhesion issue [Not Recovered/Not Resolved]
  - Wrong technique in product usage process [Not Recovered/Not Resolved]

NARRATIVE: CASE EVENT DATE: 20210124
